FAERS Safety Report 15482746 (Version 1)
Quarter: 2018Q4

REPORT INFORMATION
  Report Type: Spontaneous
  Country: IT (occurrence: IT)
  Receive Date: 20181010
  Receipt Date: 20181010
  Transmission Date: 20190205
  Serious: Yes (Other)
  Sender: FDA-Public Use
  Company Number: IT-TEVA-2018-IT-961573

PATIENT
  Age: 30 Year
  Sex: Male
  Weight: 80 kg

DRUGS (1)
  1. LIDOCAINA E PRILOCAINA TEVA [Suspect]
     Active Substance: LIDOCAINE\PRILOCAINE
     Dosage: 2.5/2.5 %
     Route: 061

REACTIONS (1)
  - Syncope [Recovered/Resolved]

NARRATIVE: CASE EVENT DATE: 20181001
